FAERS Safety Report 7982859-4 (Version None)
Quarter: 2011Q4

REPORT INFORMATION
  Report Type: 
  Country: None (occurrence: None)
  Receive Date: 20111215
  Receipt Date: 20111212
  Transmission Date: 20120403
  Serious: Yes (Death)
  Sender: FDA-Public Use
  Company Number: US-TEVA-313410USA

PATIENT
  Sex: Male

DRUGS (2)
  1. SERTRALINE HYDROCHLORIDE [Suspect]
     Indication: DEPRESSION
     Route: 015
  2. SERTRALINE HYDROCHLORIDE [Suspect]

REACTIONS (2)
  - HYPOPLASTIC LEFT HEART SYNDROME [None]
  - ATRIAL SEPTAL DEFECT [None]
